FAERS Safety Report 13539453 (Version 4)
Quarter: 2017Q4

REPORT INFORMATION
  Report Type: Spontaneous
  Country: US (occurrence: US)
  Receive Date: 20170512
  Receipt Date: 20171218
  Transmission Date: 20180320
  Serious: No
  Sender: FDA-Public Use
  Company Number: US-PFIZER INC-2017207859

PATIENT
  Age: 52 Year
  Sex: Female

DRUGS (11)
  1. LYRICA [Suspect]
     Active Substance: PREGABALIN
     Indication: FIBROMYALGIA
     Dosage: 150 MG, 2X/DAY
     Route: 048
  2. PANTOPRAZOLE SODIUM. [Concomitant]
     Active Substance: PANTOPRAZOLE SODIUM
     Dosage: 40 MG, 1X/DAY
     Route: 048
  3. MAGNESIUM [Concomitant]
     Active Substance: MAGNESIUM
     Dosage: 500 MG, 1X/DAY [WITH A MEAL]
     Route: 048
  4. TRAZODONE HYDROCHLORIDE. [Concomitant]
     Active Substance: TRAZODONE HYDROCHLORIDE
     Dosage: 100 MG, 1X/DAY [AT BEDTIME]
     Route: 048
  5. LOSARTAN POTASSIUM AND HCTZ [Concomitant]
     Dosage: 1 DF, 1X/DAY [LOSARTAN POTASSIUM- 50MG]/ [HYDROCHLOROTHIAZIDE-12.5MG]
     Route: 048
  6. DULOXETINE HCL [Concomitant]
     Active Substance: DULOXETINE HYDROCHLORIDE
     Dosage: 60 MG, 2X/DAY
     Route: 048
  7. SIMVASTATIN. [Concomitant]
     Active Substance: SIMVASTATIN
     Dosage: 40 MG, 1X/DAY [IN THE EVENING]
     Route: 048
  8. CYMBALTA [Concomitant]
     Active Substance: DULOXETINE HYDROCHLORIDE
     Indication: FIBROMYALGIA
     Dosage: 60 MG, 2X/DAY
  9. LEVOTHYROXINE SODIUM. [Concomitant]
     Active Substance: LEVOTHYROXINE SODIUM
     Dosage: 25 UG, 1X/DAY [AN EMPTY STOMACH IN THE MORNING]
     Route: 048
  10. HYDROXYCHLOROQUINE SULFATE. [Concomitant]
     Active Substance: HYDROXYCHLOROQUINE SULFATE
     Dosage: 200 MG, 1X/DAY [WITH FOOD OR MILK]
     Route: 048
  11. NALFON [Concomitant]
     Active Substance: FENOPROFEN CALCIUM
     Dosage: 400 MG, 1X/DAY
     Route: 048

REACTIONS (10)
  - Fatigue [Unknown]
  - Increased tendency to bruise [Unknown]
  - Pruritus [Unknown]
  - Dizziness [Unknown]
  - Abdominal pain [Unknown]
  - Muscle spasms [Unknown]
  - Chills [Unknown]
  - Asthenia [Unknown]
  - Skin discolouration [Unknown]
  - Pain [Unknown]
